FAERS Safety Report 18475337 (Version 1)
Quarter: 2020Q4

REPORT INFORMATION
  Report Type: Spontaneous
  Country: US (occurrence: US)
  Receive Date: 20201106
  Receipt Date: 20201106
  Transmission Date: 20210114
  Serious: No
  Sender: FDA-Public Use
  Company Number: US-ASTRAZENECA-2020SF33470

PATIENT
  Sex: Male
  Weight: 68 kg

DRUGS (1)
  1. FARXIGA [Suspect]
     Active Substance: DAPAGLIFLOZIN PROPANEDIOL
     Indication: BLOOD GLUCOSE INCREASED
     Route: 048
     Dates: start: 202008

REACTIONS (3)
  - Ill-defined disorder [Not Recovered/Not Resolved]
  - Penile erythema [Not Recovered/Not Resolved]
  - Sexual dysfunction [Not Recovered/Not Resolved]
